FAERS Safety Report 7610576-9 (Version None)
Quarter: 2011Q3

REPORT INFORMATION
  Report Type: 
  Country: None (occurrence: None)
  Receive Date: 20110707
  Receipt Date: 20110412
  Transmission Date: 20111222
  Serious: Yes (Death, Hospitalization)
  Sender: FDA-Public Use
  Company Number: 2011AP000717

PATIENT
  Age: 78 Year
  Sex: Female

DRUGS (11)
  1. GLIMEPIRIDE [Concomitant]
  2. ROSUVASTATIN [Concomitant]
  3. ZOLEDRONIC ACID [Suspect]
     Indication: OSTEOPOROSIS
     Dosage: IV
     Route: 042
  4. ERGOCALCIFEROL [Concomitant]
  5. FUROSEMIDE [Concomitant]
  6. METOPROLOL TARTRATE [Concomitant]
  7. METFORMIN HCL [Suspect]
     Indication: TYPE 2 DIABETES MELLITUS
     Dosage: 850 MG;BID
  8. RISEDRONATE SODIUM [Concomitant]
  9. AMLDOIPINE [Concomitant]
  10. NATEGLINIDE [Concomitant]
  11. INDAPAMIDE [Concomitant]

REACTIONS (16)
  - BLOOD PRESSURE DECREASED [None]
  - WHITE BLOOD CELL COUNT INCREASED [None]
  - CONTINUOUS HAEMODIAFILTRATION [None]
  - TOXICITY TO VARIOUS AGENTS [None]
  - NEPHROPATHY TOXIC [None]
  - RESPIRATORY RATE DECREASED [None]
  - BLOOD CREATINE PHOSPHOKINASE INCREASED [None]
  - PROTEINURIA [None]
  - HEART RATE DECREASED [None]
  - RENAL FAILURE ACUTE [None]
  - PUPILLARY REFLEX IMPAIRED [None]
  - HYPOTHERMIA [None]
  - RENAL DISORDER [None]
  - LACTIC ACIDOSIS [None]
  - UNRESPONSIVE TO STIMULI [None]
  - BLOOD POTASSIUM INCREASED [None]
